FAERS Safety Report 18055762 (Version 1)
Quarter: 2020Q3

REPORT INFORMATION
  Report Type: Spontaneous
  Country: ES (occurrence: ES)
  Receive Date: 20200722
  Receipt Date: 20200722
  Transmission Date: 20201103
  Serious: Yes (Hospitalization)
  Sender: FDA-Public Use
  Company Number: NVSC2020ES075324

PATIENT
  Age: 91 Year
  Sex: Male

DRUGS (5)
  1. GABAPENTINA [Concomitant]
     Active Substance: GABAPENTIN
     Indication: MONONEURITIS
     Dosage: 100 MG, Q12H
     Route: 048
     Dates: start: 20160601
  2. LINAGLIPTINA [Concomitant]
     Active Substance: LINAGLIPTIN
     Indication: TYPE 2 DIABETES MELLITUS
     Dosage: 5 MG, Q24H
     Route: 048
     Dates: start: 20160414
  3. CARVEDILOL. [Suspect]
     Active Substance: CARVEDILOL
     Indication: ACUTE MYOCARDIAL INFARCTION
     Dosage: 3.12 MG, Q24H
     Route: 048
     Dates: start: 20140920, end: 20191213
  4. DUTASTERIDE;TAMSULOSIN [Concomitant]
     Indication: BENIGN PROSTATIC HYPERPLASIA
     Dosage: UNK ((0,4/0,5) MG 1 TOMA AL DIA)
     Route: 048
     Dates: start: 20160211
  5. LANTUS [Suspect]
     Active Substance: INSULIN GLARGINE
     Indication: TYPE 2 DIABETES MELLITUS
     Dosage: 28 IU, Q24H
     Route: 058
     Dates: start: 20141128

REACTIONS (2)
  - Hypoglycaemia [Recovered/Resolved]
  - Bradycardia [Recovered/Resolved]

NARRATIVE: CASE EVENT DATE: 20191212
